FAERS Safety Report 24738541 (Version 2)
Quarter: 2024Q4

REPORT INFORMATION
  Report Type: Spontaneous
  Country: CN (occurrence: CN)
  Receive Date: 20241216
  Receipt Date: 20241231
  Transmission Date: 20250114
  Serious: Yes (Other)
  Sender: PFIZER
  Company Number: CN-PFIZER INC-PV202400158231

PATIENT
  Age: 41 Year
  Sex: Female
  Weight: 46.2 kg

DRUGS (1)
  1. PACLITAXEL [Suspect]
     Active Substance: PACLITAXEL
     Indication: Chemotherapy
     Dosage: 108 MG, 1X/DAY
     Route: 041
     Dates: start: 20230921, end: 20230921

REACTIONS (3)
  - Oxygen saturation decreased [Recovering/Resolving]
  - Flushing [Recovering/Resolving]
  - Drug hypersensitivity [Unknown]

NARRATIVE: CASE EVENT DATE: 20230921
